FAERS Safety Report 15834510 (Version 1)
Quarter: 2019Q1

REPORT INFORMATION
  Report Type: Other
  Country: US (occurrence: US)
  Receive Date: 20190116
  Receipt Date: 20190116
  Transmission Date: 20190417
  Serious: Yes (Hospitalization)
  Sender: FDA-Public Use
  Company Number: US-WALMART-2061283

PATIENT
  Age: 45 Year
  Sex: Male
  Weight: 86.36 kg

DRUGS (1)
  1. ACETAMINOPHEN 500MG CAPLETS [Suspect]
     Active Substance: ACETAMINOPHEN
     Indication: HEADACHE
     Route: 048
     Dates: start: 20190107, end: 20190107

REACTIONS (3)
  - Dyspnoea [Recovered/Resolved]
  - Chest discomfort [Recovered/Resolved]
  - Eye swelling [Recovered/Resolved]
